FAERS Safety Report 7356618-X (Version None)
Quarter: 2011Q1

REPORT INFORMATION
  Report Type: 
  Country: None (occurrence: None)
  Receive Date: 20110316
  Receipt Date: 20110303
  Transmission Date: 20110831
  Serious: Yes (Hospitalization)
  Sender: FDA-Public Use
  Company Number: PHHY2011GR17669

PATIENT
  Age: 71 Year
  Sex: Male

DRUGS (5)
  1. CERTICAN [Suspect]
     Indication: HEART TRANSPLANT
     Dosage: 225 MG, UNK
     Route: 048
     Dates: start: 20101007, end: 20110303
  2. ZYLORIC [Concomitant]
     Indication: HYPERURICAEMIA
     Dosage: 100 MG, QD
  3. CELLCEPT [Concomitant]
     Indication: HEART TRANSPLANT
     Dosage: 500 MG, BID
     Dates: start: 20050223
  4. LASIX [Concomitant]
     Indication: HYPERTENSION
     Dosage: 40 MG, QD
  5. ACCUPRON [Concomitant]
     Indication: HYPERTENSION
     Dosage: 10 MG, QD

REACTIONS (5)
  - VERTIGO [None]
  - GAIT DISTURBANCE [None]
  - NYSTAGMUS [None]
  - HEADACHE [None]
  - VOMITING [None]
